FAERS Safety Report 6115347-0 (Version None)
Quarter: 2009Q1

REPORT INFORMATION
  Report Type: 
  Country: None (occurrence: None)
  Receive Date: 20090313
  Receipt Date: 20090312
  Transmission Date: 20090719
  Serious: Yes (Life-Threatening)
  Sender: FDA-Public Use
  Company Number: BE-ASTRAZENECA-2009AC00817

PATIENT
  Age: 24 Year
  Sex: Female

DRUGS (1)
  1. DIPRIVAN [Suspect]
     Indication: BRAIN TUMOUR OPERATION
     Route: 042
     Dates: start: 20090301

REACTIONS (1)
  - GENERAL PHYSICAL HEALTH DETERIORATION [None]
